FAERS Safety Report 20839068 (Version 1)
Quarter: 2022Q2

REPORT INFORMATION
  Report Type: Report from Study
  Country: AR (occurrence: AR)
  Receive Date: 20220517
  Receipt Date: 20220517
  Transmission Date: 20220720
  Serious: Yes (Other)
  Sender: FDA-Public Use
  Company Number: AR-ABBVIE-22K-007-4395202-00

PATIENT
  Age: 42 Year
  Sex: Female

DRUGS (1)
  1. HUMIRA [Suspect]
     Active Substance: ADALIMUMAB
     Indication: Colitis ulcerative
     Route: 058
     Dates: start: 20201118

REACTIONS (4)
  - Throat tightness [Recovered/Resolved]
  - Arthritis [Recovering/Resolving]
  - Joint range of motion decreased [Recovering/Resolving]
  - Adverse drug reaction [Unknown]

NARRATIVE: CASE EVENT DATE: 20220509
